FAERS Safety Report 6465295-1 (Version None)
Quarter: 2009Q4

REPORT INFORMATION
  Report Type: 
  Country: None (occurrence: None)
  Receive Date: 20091124
  Receipt Date: 20091110
  Transmission Date: 20100525
  Serious: Yes (Death, Other)
  Sender: FDA-Public Use
  Company Number: FR-2009-2336

PATIENT
  Age: 71 Year
  Sex: Male

DRUGS (3)
  1. NAVELBINE [Suspect]
     Indication: LUNG CANCER METASTATIC
     Dates: start: 20090716
  2. NAVELBINE [Suspect]
     Indication: LUNG CANCER METASTATIC
     Dates: start: 20090723
  3. NAVELBINE [Suspect]
     Indication: LUNG CANCER METASTATIC
     Dates: start: 20090813

REACTIONS (3)
  - LARGE INTESTINE PERFORATION [None]
  - NEUTROPENIA [None]
  - PERITONITIS [None]
